FAERS Safety Report 11425229 (Version 1)
Quarter: 2015Q3

REPORT INFORMATION
  Report Type: Spontaneous
  Country: US (occurrence: US)
  Receive Date: 20150827
  Receipt Date: 20150827
  Transmission Date: 20151125
  Serious: Yes (Hospitalization)
  Sender: FDA-Public Use
  Company Number: US-MYLANLABS-2015M1028818

PATIENT

DRUGS (2)
  1. LITHIUM CARBONATE. [Suspect]
     Active Substance: LITHIUM CARBONATE
     Indication: BIPOLAR DISORDER
     Dosage: PRESCRIPTION OF LITHIUM WAS FILLED FOR 120 TABLETS OF 300MG LITHIUM
     Route: 065
  2. LITHIUM CARBONATE. [Suspect]
     Active Substance: LITHIUM CARBONATE
     Dosage: INGESTED A SMALL HANDFUL OF TABLETS
     Route: 048

REACTIONS (9)
  - Intentional overdose [Recovered/Resolved]
  - Nausea [Recovered/Resolved]
  - Electrocardiogram T wave amplitude decreased [Recovered/Resolved]
  - Ataxia [Recovered/Resolved]
  - Tremor [Recovered/Resolved]
  - Vomiting [Recovered/Resolved]
  - Toxicity to various agents [Recovered/Resolved]
  - Abdominal pain [Recovered/Resolved]
  - Sinus tachycardia [Recovered/Resolved]
